FAERS Safety Report 8015465-6 (Version None)
Quarter: 2011Q4

REPORT INFORMATION
  Report Type: 
  Country: None (occurrence: None)
  Receive Date: 20111223
  Receipt Date: 20111220
  Transmission Date: 20120403
  Serious: Yes (Death)
  Sender: FDA-Public Use
  Company Number: DKLU1075391

PATIENT
  Age: 3 Year
  Sex: Female

DRUGS (1)
  1. SABRIL [Suspect]
     Indication: GRAND MAL CONVULSION
     Dosage: 750 MG MILLIGRAM(S), 2 IN 1 D, ORAL
     Route: 048
     Dates: start: 20091204, end: 20111210

REACTIONS (1)
  - LUNG DISORDER [None]
